FAERS Safety Report 18428676 (Version 1)
Quarter: 2020Q4

REPORT INFORMATION
  Report Type: Other
  Country: CA (occurrence: CA)
  Receive Date: 20201026
  Receipt Date: 20201026
  Transmission Date: 20210114
  Serious: Yes (Life-Threatening, Hospitalization, Other)
  Sender: FDA-Public Use
  Company Number: CA-SAOL THERAPEUTICS-2020SAO00457

PATIENT
  Age: 61 Year
  Sex: Female
  Weight: 56 kg

DRUGS (11)
  1. PREVNAR 13 [Suspect]
     Active Substance: PNEUMOCOCCAL 13-VALENT CONJUGATE VACCINE
     Indication: PRODUCT USED FOR UNKNOWN INDICATION
     Route: 030
  2. PIPERACILLIN SODIUM/ TAZOBACTAM SODIUM [Suspect]
     Active Substance: PIPERACILLIN SODIUM\TAZOBACTAM SODIUM
     Indication: PRODUCT USED FOR UNKNOWN INDICATION
  3. PNEUMOVAX 23 [Suspect]
     Active Substance: PNEUMOCOCCAL VACCINE, POLYVALENT 23
     Indication: PRODUCT USED FOR UNKNOWN INDICATION
  4. INFLUENZA VACCINES [Suspect]
     Active Substance: INFLUENZA VIRUS VACCINE
     Indication: PRODUCT USED FOR UNKNOWN INDICATION
  5. PREGABALIN. [Concomitant]
     Active Substance: PREGABALIN
     Indication: NEUROPATHY PERIPHERAL
     Dosage: 50 MG, 1X/DAY
     Route: 048
  6. PNEUMOVAX 23 [Suspect]
     Active Substance: PNEUMOCOCCAL VACCINE, POLYVALENT 23
     Indication: PROPHYLAXIS
     Dosage: 1 DOSAGE UNITS
     Route: 030
  7. VARICELLA ZOSTER IMMUNE GLOBULIN [Suspect]
     Active Substance: HUMAN VARICELLA-ZOSTER IMMUNE GLOBULIN
     Indication: PRODUCT USED FOR UNKNOWN INDICATION
     Dosage: DOSE FREQUENCY 1 DAY
     Route: 030
  8. METHOTREXATE. [Concomitant]
     Active Substance: METHOTREXATE
     Indication: BEHCET^S SYNDROME
     Dosage: 15 MG, 1X/WEEK
     Route: 048
  9. PREDNISONE. [Concomitant]
     Active Substance: PREDNISONE
     Indication: BEHCET^S SYNDROME
     Dosage: 5 MG, 1X/DAY
     Route: 048
  10. ESCITALOPRAM OXALATE. [Concomitant]
     Active Substance: ESCITALOPRAM OXALATE
     Indication: DEPRESSION
     Dosage: 10 MG, 1X/DAY
     Route: 048
  11. VARICELLA ZOSTER IMMUNE GLOBULIN [Suspect]
     Active Substance: HUMAN VARICELLA-ZOSTER IMMUNE GLOBULIN
     Dosage: DOSE FREQUENCY 1 MONTHS
     Route: 030

REACTIONS (21)
  - Large intestine polyp [Recovered/Resolved]
  - Osteoarthritis [Recovered/Resolved]
  - Physical deconditioning [Recovered/Resolved]
  - Glaucoma [Recovered/Resolved]
  - Hyperparathyroidism primary [Recovered/Resolved]
  - Gait inability [Recovered/Resolved]
  - Spinal fusion surgery [Recovered/Resolved]
  - Affective disorder [Recovered/Resolved]
  - Anaphylactic shock [Recovered/Resolved]
  - Cardiac failure [Recovered/Resolved]
  - Osteoporosis [Recovered/Resolved]
  - Deep vein thrombosis [Recovered/Resolved]
  - Gastrooesophageal reflux disease [Recovered/Resolved]
  - Normochromic normocytic anaemia [Recovered/Resolved]
  - Sciatica [Recovered/Resolved]
  - Septic shock [Recovered/Resolved]
  - Acute kidney injury [Recovered/Resolved]
  - Psoriasis [Recovered/Resolved]
  - Cataract [Recovered/Resolved]
  - Delirium [Recovered/Resolved]
  - Stress cardiomyopathy [Recovered/Resolved]
